FAERS Safety Report 5265003-6 (Version None)
Quarter: 2007Q1

REPORT INFORMATION
  Report Type: 
  Country: None (occurrence: None)
  Receive Date: 20061122
  Receipt Date: 20060731
  Transmission Date: 20070707
  Serious: Yes (Hospitalization)
  Sender: FDA-Public Use
  Company Number: US-JNJFOC-20060800515

PATIENT
  Age: 47 Year
  Sex: Male

DRUGS (5)
  1. RISPERDAL [Suspect]
     Indication: BIPOLAR DISORDER
     Dosage: 37.5 MG 1 IN 2 WEEK INTRAMUSCULAR
     Route: 030
  2. SEROQUEL [Concomitant]
  3. LEXAPRO [Concomitant]
  4. DEPAKOTE [Concomitant]
  5. NEURONTIN [Concomitant]

REACTIONS (1)
  - DEPRESSION [None]
